FAERS Safety Report 8294349-2 (Version None)
Quarter: 2012Q2

REPORT INFORMATION
  Report Type: 
  Country: None (occurrence: None)
  Receive Date: 20120413
  Receipt Date: 20120405
  Transmission Date: 20120825
  Serious: Yes (Hospitalization, Other)
  Sender: FDA-Public Use
  Company Number: 2012ST000256

PATIENT
  Age: 84 Year
  Sex: Female

DRUGS (2)
  1. MATULANE [Suspect]
     Indication: LYMPHOMA
     Dosage: 100 MG;QOD;PO 150 MG;QOD;PO
     Route: 048
     Dates: start: 20120209, end: 20120215
  2. MATULANE [Suspect]
     Indication: LYMPHOMA
     Dosage: 100 MG;QOD;PO 150 MG;QOD;PO
     Route: 048
     Dates: start: 20120209, end: 20120216

REACTIONS (6)
  - FEBRILE NEUTROPENIA [None]
  - CLOSTRIDIAL INFECTION [None]
  - RENAL IMPAIRMENT [None]
  - DEHYDRATION [None]
  - PANCYTOPENIA [None]
  - ASTHENIA [None]
